FAERS Safety Report 15385462 (Version 2)
Quarter: 2018Q3

REPORT INFORMATION
  Report Type: Spontaneous
  Country: JP (occurrence: JP)
  Receive Date: 20180914
  Receipt Date: 20180920
  Transmission Date: 20181010
  Serious: Yes (Death)
  Sender: FDA-Public Use
  Company Number: JP-BAYER-2018-169112

PATIENT
  Age: 91 Year
  Sex: Male

DRUGS (5)
  1. PRASUGREL. [Suspect]
     Active Substance: PRASUGREL
     Dosage: DAILY DOSE 3.75 MG
     Route: 048
  2. BAYASPIRIN 100 MG [Suspect]
     Active Substance: ASPIRIN
     Indication: ACUTE MYOCARDIAL INFARCTION
     Dosage: 200 MG, QD
     Route: 048
     Dates: start: 20180426, end: 20180502
  3. PRASUGREL. [Suspect]
     Active Substance: PRASUGREL
     Dosage: DAILY DOSE 20 MG
     Route: 048
  4. BAYASPIRIN 100 MG [Suspect]
     Active Substance: ASPIRIN
     Indication: PERCUTANEOUS CORONARY INTERVENTION
  5. BAYASPIRIN 100 MG [Suspect]
     Active Substance: ASPIRIN
     Indication: ANTIPLATELET THERAPY

REACTIONS (6)
  - Depressed level of consciousness [Fatal]
  - Vomiting [Fatal]
  - Dyslalia [Fatal]
  - Hemiplegia [Fatal]
  - Haemorrhage intracranial [Fatal]
  - Dizziness [Fatal]

NARRATIVE: CASE EVENT DATE: 20180502
